FAERS Safety Report 22321348 (Version 2)
Quarter: 2023Q2

REPORT INFORMATION
  Report Type: Spontaneous
  Country: FR (occurrence: FR)
  Receive Date: 20230515
  Receipt Date: 20230615
  Transmission Date: 20230721
  Serious: Yes (Other)
  Sender: FDA-Public Use
  Company Number: FR-MYLANLABS-2023M1049161

PATIENT
  Age: 73 Year
  Sex: Female
  Weight: 87 kg

DRUGS (7)
  1. ATORVASTATIN [Suspect]
     Active Substance: ATORVASTATIN
     Indication: Blood cholesterol
     Dosage: UNK
     Route: 065
     Dates: start: 202303
  2. ATORVASTATIN [Suspect]
     Active Substance: ATORVASTATIN
     Indication: Arteriosclerosis
     Dosage: 10 MILLIGRAM, QD(1 MONTH 1 DAY)
     Route: 048
     Dates: start: 20230415, end: 20230515
  3. ATORVASTATIN [Suspect]
     Active Substance: ATORVASTATIN
     Indication: Transient ischaemic attack
  4. TAHOR [Suspect]
     Active Substance: ATORVASTATIN CALCIUM
     Indication: Blood cholesterol
     Dosage: UNK
     Route: 065
     Dates: start: 20230415
  5. TAHOR [Suspect]
     Active Substance: ATORVASTATIN CALCIUM
     Indication: Arteriosclerosis
  6. TAHOR [Suspect]
     Active Substance: ATORVASTATIN CALCIUM
     Indication: Transient ischaemic attack
  7. LERCANIDIPINE HYDROCHLORIDE [Suspect]
     Active Substance: LERCANIDIPINE HYDROCHLORIDE
     Indication: Product used for unknown indication
     Dosage: 10 MILLIGRAM
     Route: 048
     Dates: start: 20230415

REACTIONS (14)
  - Dysuria [Recovered/Resolved]
  - Pain in extremity [Not Recovered/Not Resolved]
  - Oedema peripheral [Not Recovered/Not Resolved]
  - Fatigue [Not Recovered/Not Resolved]
  - Constipation [Not Recovered/Not Resolved]
  - Haematuria [Recovered/Resolved]
  - Gait disturbance [Not Recovered/Not Resolved]
  - Ocular discomfort [Unknown]
  - Vision blurred [Not Recovered/Not Resolved]
  - Hyperhidrosis [Not Recovered/Not Resolved]
  - Amnesia [Not Recovered/Not Resolved]
  - Pruritus [Not Recovered/Not Resolved]
  - Depressed mood [Unknown]
  - Therapy cessation [Recovered/Resolved]

NARRATIVE: CASE EVENT DATE: 20230301
